FAERS Safety Report 8986801 (Version 1)
Quarter: 2012Q4

REPORT INFORMATION
  Report Type: 
  Country: IR (occurrence: IR)
  Receive Date: 20121226
  Receipt Date: 20121226
  Transmission Date: 20130627
  Serious: Yes (Hospitalization)
  Sender: FDA-Public Use
  Company Number: IR-SANOFI-AVENTIS-2012SA092511

PATIENT
  Age: 27 Year
  Sex: Female

DRUGS (4)
  1. RIFAMPICIN [Suspect]
     Indication: BRUCELLOSIS
     Route: 048
  2. CITALOPRAM [Interacting]
     Indication: PANIC ATTACKS
     Route: 065
  3. CITALOPRAM [Interacting]
     Indication: PANIC ATTACKS
     Route: 065
  4. DOXYCYCLINE [Concomitant]
     Indication: BRUCELLOSIS

REACTIONS (12)
  - Panic attack [Recovering/Resolving]
  - Drug interaction [Unknown]
  - Nausea [Recovering/Resolving]
  - Vomiting [Recovering/Resolving]
  - Dyspepsia [Recovering/Resolving]
  - Abdominal pain [Recovering/Resolving]
  - Dizziness [Recovering/Resolving]
  - Tremor [Recovering/Resolving]
  - Hyperhidrosis [Recovering/Resolving]
  - Agitation [Recovering/Resolving]
  - Tachycardia [Recovering/Resolving]
  - Fear of death [Recovering/Resolving]
